FAERS Safety Report 9465331 (Version 1)
Quarter: 2013Q3

REPORT INFORMATION
  Report Type: Spontaneous
  Country: US (occurrence: US)
  Receive Date: 20130820
  Receipt Date: 20130820
  Transmission Date: 20140515
  Serious: No
  Sender: FDA-Public Use
  Company Number: US-009507513-1308USA005439

PATIENT
  Sex: Female

DRUGS (1)
  1. NUVARING [Suspect]
     Indication: ENDOMETRIOSIS
     Dosage: 3 STANDARD DOSES OF 1
     Route: 067
     Dates: start: 201107

REACTIONS (1)
  - Metrorrhagia [Unknown]
